FAERS Safety Report 9829795 (Version 2)
Quarter: 2019Q2

REPORT INFORMATION
  Report Type: Spontaneous
  Country: FR (occurrence: FR)
  Receive Date: 20140120
  Receipt Date: 20190621
  Transmission Date: 20190711
  Serious: Yes (Hospitalization, Other)
  Sender: FDA-Public Use
  Company Number: FR-ASTRAZENECA-2014SE03237

PATIENT
  Age: 31420 Day
  Sex: Female

DRUGS (10)
  1. ALDACTONE [Suspect]
     Active Substance: SPIRONOLACTONE
     Route: 048
     Dates: end: 20131125
  2. GAVISCON [Concomitant]
     Active Substance: ALUMINUM HYDROXIDE\MAGNESIUM CARBONATE
  3. LASILIX [Suspect]
     Active Substance: FUROSEMIDE
     Route: 048
  4. LASILIX [Suspect]
     Active Substance: FUROSEMIDE
     Route: 048
  5. LEVOTHYROX [Concomitant]
     Active Substance: LEVOTHYROXINE
  6. PREVISCAN [Concomitant]
  7. STILNOX [Concomitant]
     Active Substance: ZOLPIDEM TARTRATE
  8. EUPANTOL [Suspect]
     Active Substance: PANTOPRAZOLE SODIUM
     Indication: PRODUCT USED FOR UNKNOWN INDICATION
     Route: 048
     Dates: end: 20131125
  9. ATACAND [Suspect]
     Active Substance: CANDESARTAN CILEXETIL
     Route: 048
  10. LASILIX [Suspect]
     Active Substance: FUROSEMIDE
     Route: 048

REACTIONS (5)
  - Asthma [Unknown]
  - Hyponatraemia [Recovered/Resolved]
  - Acute kidney injury [Recovering/Resolving]
  - Bronchitis [Unknown]
  - Cardiac failure [Unknown]

NARRATIVE: CASE EVENT DATE: 20131115
